FAERS Safety Report 22346994 (Version 4)
Quarter: 2023Q2

REPORT INFORMATION
  Report Type: Report from Study
  Country: US (occurrence: US)
  Receive Date: 20230520
  Receipt Date: 20230623
  Transmission Date: 20230722
  Serious: Yes (Hospitalization)
  Sender: FDA-Public Use
  Company Number: US-002147023-NVSC2023US115991

PATIENT
  Sex: Female

DRUGS (1)
  1. TABRECTA [Suspect]
     Active Substance: CAPMATINIB
     Indication: Product used for unknown indication
     Dosage: UNK
     Route: 048

REACTIONS (6)
  - Pulmonary oedema [Unknown]
  - Mobility decreased [Recovered/Resolved with Sequelae]
  - Poor quality sleep [Unknown]
  - Restlessness [Unknown]
  - Decreased appetite [Recovering/Resolving]
  - Product dose omission issue [Unknown]
